FAERS Safety Report 9357453 (Version 2)
Quarter: 2013Q3

REPORT INFORMATION
  Report Type: Report from Study
  Country: IN (occurrence: IN)
  Receive Date: 20130620
  Receipt Date: 20130709
  Transmission Date: 20140515
  Serious: Yes (Hospitalization, Other)
  Sender: FDA-Public Use
  Company Number: PHHY2013IN062189

PATIENT
  Age: 32 Year
  Sex: Male

DRUGS (4)
  1. SIMULECT [Suspect]
     Indication: RENAL TRANSPLANT
     Dosage: 20 MG, UNK
     Dates: start: 20130506
  2. TACROLIMUS [Concomitant]
     Indication: IMMUNOSUPPRESSION
     Dosage: UNK UKN, UNK
     Dates: start: 20130504
  3. MYCOPHENOLATE MOFETIL [Concomitant]
     Indication: IMMUNOSUPPRESSION
     Dosage: UNK UKN, UNK
     Dates: start: 20130504
  4. PREDNISOLON [Concomitant]
     Indication: IMMUNOSUPPRESSION
     Dosage: UNK UKN, UNK
     Dates: start: 20130504

REACTIONS (5)
  - Glomerulonephritis rapidly progressive [Unknown]
  - Kidney transplant rejection [Unknown]
  - Cytomegalovirus infection [Unknown]
  - Blood lactate dehydrogenase increased [Unknown]
  - Haemoglobin decreased [Unknown]
